FAERS Safety Report 12735508 (Version 1)
Quarter: 2016Q3

REPORT INFORMATION
  Report Type: Spontaneous
  Country: US (occurrence: US)
  Receive Date: 20160912
  Receipt Date: 20160912
  Transmission Date: 20161109
  Serious: No
  Sender: FDA-Public Use
  Company Number: US-ASTRAZENECA-2016SE92670

PATIENT
  Age: 36 Year
  Sex: Female
  Weight: 111.1 kg

DRUGS (6)
  1. SEROQUEL XR [Suspect]
     Active Substance: QUETIAPINE FUMARATE
     Indication: DEPRESSION
     Route: 048
     Dates: start: 2011, end: 2015
  2. SEROQUEL XR [Suspect]
     Active Substance: QUETIAPINE FUMARATE
     Indication: BIPOLAR DISORDER
     Dosage: QUETIAPINE FUMARATE; 300 MG DAILY
     Route: 048
     Dates: start: 2015, end: 20160808
  3. SEROQUEL XR [Suspect]
     Active Substance: QUETIAPINE FUMARATE
     Indication: DEPRESSION
     Dosage: QUETIAPINE FUMARATE; 300 MG DAILY
     Route: 048
     Dates: start: 2015, end: 20160808
  4. SEROQUEL XR [Suspect]
     Active Substance: QUETIAPINE FUMARATE
     Indication: BIPOLAR DISORDER
     Route: 048
     Dates: start: 2011, end: 2015
  5. SEROQUEL XR [Suspect]
     Active Substance: QUETIAPINE FUMARATE
     Indication: BIPOLAR DISORDER
     Dosage: QUETIAPINE FUMARATE; 150 MG DAILY
     Route: 048
     Dates: start: 20160808, end: 20160811
  6. SEROQUEL XR [Suspect]
     Active Substance: QUETIAPINE FUMARATE
     Indication: DEPRESSION
     Dosage: QUETIAPINE FUMARATE; 150 MG DAILY
     Route: 048
     Dates: start: 20160808, end: 20160811

REACTIONS (4)
  - Feeding disorder [Not Recovered/Not Resolved]
  - Somnolence [Recovered/Resolved]
  - Tardive dyskinesia [Recovering/Resolving]
  - Nausea [Not Recovered/Not Resolved]

NARRATIVE: CASE EVENT DATE: 2011
